FAERS Safety Report 5815571-8 (Version None)
Quarter: 2008Q3

REPORT INFORMATION
  Report Type: 
  Country: None (occurrence: None)
  Receive Date: 20080718
  Receipt Date: 20080703
  Transmission Date: 20090109
  Serious: Yes (Hospitalization, Other)
  Sender: FDA-Public Use
  Company Number: IE-GENENTECH-259165

PATIENT
  Sex: Female
  Weight: 76 kg

DRUGS (26)
  1. XOLAIR [Suspect]
     Indication: ASTHMA
     Dosage: 375 MG, UNKNOWN
     Route: 058
     Dates: start: 20080402
  2. SODIUM CHLORIDE [Concomitant]
     Indication: DRUG USE FOR UNKNOWN INDICATION
  3. CARBOCISTEINE [Concomitant]
     Indication: DRUG USE FOR UNKNOWN INDICATION
  4. THEOPHYLLINE [Concomitant]
     Indication: DRUG USE FOR UNKNOWN INDICATION
  5. SERETIDE [Concomitant]
     Indication: DRUG USE FOR UNKNOWN INDICATION
  6. PANTOPRAZOLE SODIUM [Concomitant]
     Indication: DRUG USE FOR UNKNOWN INDICATION
  7. PREDNISOLONE [Concomitant]
     Indication: DRUG USE FOR UNKNOWN INDICATION
  8. SERTRALINE [Concomitant]
     Indication: DRUG USE FOR UNKNOWN INDICATION
  9. SIBELIUM [Concomitant]
     Indication: DRUG USE FOR UNKNOWN INDICATION
  10. CRESTOR [Concomitant]
     Indication: DRUG USE FOR UNKNOWN INDICATION
  11. ZIMOVANE [Concomitant]
     Indication: DRUG USE FOR UNKNOWN INDICATION
  12. ACETAMINOPHEN [Concomitant]
     Indication: DRUG USE FOR UNKNOWN INDICATION
  13. LUSTRAL [Concomitant]
     Indication: DRUG USE FOR UNKNOWN INDICATION
  14. IPRATROPIUM + SALBUTAMOL [Concomitant]
     Indication: DRUG USE FOR UNKNOWN INDICATION
  15. ACETAMINOPHEN [Concomitant]
     Indication: DRUG USE FOR UNKNOWN INDICATION
  16. AUGMENTIN '125' [Concomitant]
     Indication: DRUG USE FOR UNKNOWN INDICATION
     Dosage: 625
  17. CLARITHROMYCIN [Concomitant]
     Indication: DRUG USE FOR UNKNOWN INDICATION
  18. SPIRIVA [Concomitant]
     Indication: DRUG USE FOR UNKNOWN INDICATION
  19. FUROSEMIDE [Concomitant]
     Indication: DRUG USE FOR UNKNOWN INDICATION
     Dosage: UNK
     Dates: end: 20080613
  20. VENTOLIN [Concomitant]
     Indication: DRUG USE FOR UNKNOWN INDICATION
     Dosage: 200
  21. FLUTICASONE PROPIONATE [Concomitant]
     Indication: DRUG USE FOR UNKNOWN INDICATION
  22. OMEPRAZOLE [Concomitant]
     Indication: DRUG USE FOR UNKNOWN INDICATION
  23. ZOLPIDEM TARTRATE [Concomitant]
     Indication: DRUG USE FOR UNKNOWN INDICATION
  24. SLOW-K [Concomitant]
     Indication: DRUG USE FOR UNKNOWN INDICATION
  25. PROCORALAN [Concomitant]
     Indication: DRUG USE FOR UNKNOWN INDICATION
     Dosage: UNK
     Dates: start: 20080618
  26. COMBIVENT [Concomitant]
     Indication: DRUG USE FOR UNKNOWN INDICATION

REACTIONS (3)
  - COUGH [None]
  - INJECTION SITE ERYTHEMA [None]
  - WHEEZING [None]
